FAERS Safety Report 21186533 (Version 1)
Quarter: 2022Q3

REPORT INFORMATION
  Report Type: Spontaneous
  Country: US (occurrence: None)
  Receive Date: 20220808
  Receipt Date: 20220808
  Transmission Date: 20221027
  Serious: Yes (Hospitalization)
  Sender: FDA-Public Use
  Company Number: None

PATIENT
  Sex: Female

DRUGS (2)
  1. CAPECITABINE [Suspect]
     Active Substance: CAPECITABINE
     Dosage: OTHER FREQUENCY : BID DAYS 1-14;?
     Route: 048
     Dates: start: 20220620
  2. TUKYSA [Concomitant]
     Active Substance: TUCATINIB
     Dates: start: 20220620

REACTIONS (2)
  - Osteomyelitis [None]
  - Pain in extremity [None]
